FAERS Safety Report 15093376 (Version 2)
Quarter: 2018Q3

REPORT INFORMATION
  Report Type: Spontaneous
  Country: US (occurrence: US)
  Receive Date: 20180629
  Receipt Date: 20180723
  Transmission Date: 20181010
  Serious: Yes (Other)
  Sender: FDA-Public Use
  Company Number: US-OTSUKA-2018_017067

PATIENT
  Sex: Male

DRUGS (1)
  1. ABILIFY [Suspect]
     Active Substance: ARIPIPRAZOLE
     Indication: PRODUCT USED FOR UNKNOWN INDICATION
     Dosage: 10 MG, QD
     Route: 065
     Dates: start: 2010, end: 2015

REACTIONS (19)
  - Abnormal behaviour [Recovered/Resolved]
  - Theft [Recovered/Resolved]
  - Sexual dysfunction [Recovered/Resolved]
  - Product use in unapproved indication [Unknown]
  - Anhedonia [Unknown]
  - Shoplifting [Recovered/Resolved]
  - Emotional distress [Unknown]
  - Gambling disorder [Recovered/Resolved]
  - Unintended pregnancy [Unknown]
  - Compulsive sexual behaviour [Recovered/Resolved]
  - Compulsive shopping [Recovered/Resolved]
  - Loss of employment [Unknown]
  - Disability [Unknown]
  - Injury [Unknown]
  - Mental impairment [Unknown]
  - Eating disorder [Recovered/Resolved]
  - Social problem [Unknown]
  - Obsessive-compulsive disorder [Recovered/Resolved]
  - Economic problem [Unknown]

NARRATIVE: CASE EVENT DATE: 2010
